FAERS Safety Report 18094286 (Version 2)
Quarter: 2020Q4

REPORT INFORMATION
  Report Type: Spontaneous
  Country: US (occurrence: US)
  Receive Date: 20200730
  Receipt Date: 20201012
  Transmission Date: 20210113
  Serious: Yes (Hospitalization, Other)
  Sender: FDA-Public Use
  Company Number: US-PURDUE-USA-2020-0153849

PATIENT
  Sex: Female

DRUGS (7)
  1. OXYCONTIN [Suspect]
     Active Substance: OXYCODONE HYDROCHLORIDE
     Dosage: 40, 60, 80 MG
     Route: 048
  2. AMBIEN CR [Suspect]
     Active Substance: ZOLPIDEM TARTRATE
     Indication: PRODUCT USED FOR UNKNOWN INDICATION
     Dosage: UNK
     Route: 065
     Dates: start: 2004
  3. DIAZEPAM. [Suspect]
     Active Substance: DIAZEPAM
     Indication: PRODUCT USED FOR UNKNOWN INDICATION
     Route: 065
  4. OXYCODONE HYDROCHLORIDE (SIMILAR TO NDA 22-272) [Suspect]
     Active Substance: OXYCODONE HYDROCHLORIDE
     Indication: BREAKTHROUGH PAIN
     Dosage: 30 MG, Q6H
     Route: 048
     Dates: start: 2004
  5. DILAUDID [Suspect]
     Active Substance: HYDROMORPHONE HYDROCHLORIDE
     Indication: SURGERY
     Dosage: 6 DF, DAILY
     Route: 048
     Dates: start: 2004
  6. OXYCONTIN [Suspect]
     Active Substance: OXYCODONE HYDROCHLORIDE
     Indication: SPINAL OPERATION
     Dosage: 20 MG, UNK
     Route: 048
     Dates: start: 2004
  7. AMBIEN [Suspect]
     Active Substance: ZOLPIDEM TARTRATE
     Indication: PRODUCT USED FOR UNKNOWN INDICATION
     Dosage: UNK
     Route: 065
     Dates: start: 2004

REACTIONS (13)
  - Drug tolerance [Unknown]
  - Pain [Unknown]
  - Judgement impaired [Unknown]
  - Rectocele [Unknown]
  - Drug dependence [Not Recovered/Not Resolved]
  - Muscle spasms [Unknown]
  - Hernia [Unknown]
  - Intervertebral disc disorder [Unknown]
  - Off label use [Unknown]
  - Withdrawal syndrome [Unknown]
  - Spinal operation [Unknown]
  - Peripheral nerve operation [Unknown]
  - Constipation [Unknown]

NARRATIVE: CASE EVENT DATE: 2004
